FAERS Safety Report 16802879 (Version 1)
Quarter: 2019Q3

REPORT INFORMATION
  Report Type: Spontaneous
  Country: US (occurrence: US)
  Receive Date: 20190913
  Receipt Date: 20190913
  Transmission Date: 20191005
  Serious: No
  Sender: FDA-Public Use
  Company Number: US-ROCHE-2338973

PATIENT
  Sex: Female
  Weight: 108.96 kg

DRUGS (1)
  1. HERCEPTIN HYLECTA [Suspect]
     Active Substance: TRASTUZUMAB AND HYALURONIDASE-OYSK
     Indication: BREAST CANCER
     Route: 058
     Dates: start: 20190613

REACTIONS (2)
  - Presyncope [Recovered/Resolved]
  - Erythema [Unknown]

NARRATIVE: CASE EVENT DATE: 20190613
